FAERS Safety Report 14806211 (Version 1)
Quarter: 2018Q2

REPORT INFORMATION
  Report Type: Spontaneous
  Country: MX (occurrence: MX)
  Receive Date: 20180425
  Receipt Date: 20180425
  Transmission Date: 20180711
  Serious: Yes (Other)
  Sender: FDA-Public Use
  Company Number: MX-BRISTOL-MYERS SQUIBB COMPANY-BMS-2018-036950

PATIENT
  Age: 63 Year
  Sex: Male
  Weight: 75 kg

DRUGS (2)
  1. ELICUIS [Suspect]
     Active Substance: APIXABAN
     Indication: PERIPHERAL VENOUS DISEASE
     Dosage: 5 MG, BID
     Route: 065
  2. ELICUIS [Suspect]
     Active Substance: APIXABAN
     Indication: PERIPHERAL VENOUS DISEASE
     Route: 065

REACTIONS (2)
  - Off label use [Unknown]
  - Deep vein thrombosis [Unknown]
